FAERS Safety Report 24376545 (Version 1)
Quarter: 2024Q3

REPORT INFORMATION
  Report Type: Spontaneous
  Country: US (occurrence: US)
  Receive Date: 20240930
  Receipt Date: 20240930
  Transmission Date: 20241017
  Serious: No
  Sender: EISAI
  Company Number: US-Eisai-EC-2024-173959

PATIENT
  Age: 73 Year
  Sex: Female

DRUGS (1)
  1. LEQEMBI [Suspect]
     Active Substance: LECANEMAB-IRMB
     Indication: Product used for unknown indication
     Dosage: DOSE UNKNOWN
     Route: 042
     Dates: end: 2024

REACTIONS (1)
  - Magnetic resonance imaging abnormal [Unknown]

NARRATIVE: CASE EVENT DATE: 20240701
